FAERS Safety Report 21615296 (Version 1)
Quarter: 2022Q4

REPORT INFORMATION
  Report Type: Report from Study
  Country: US (occurrence: None)
  Receive Date: 20221118
  Receipt Date: 20221118
  Transmission Date: 20230112
  Serious: Yes (Other)
  Sender: FDA-Public Use
  Company Number: 2022A375131

PATIENT
  Sex: Male

DRUGS (1)
  1. FASENRA [Suspect]
     Active Substance: BENRALIZUMAB
     Indication: Illness
     Route: 058
     Dates: start: 20220615

REACTIONS (3)
  - Dyspnoea [Recovering/Resolving]
  - Umbilical hernia [Recovering/Resolving]
  - Chronic obstructive pulmonary disease [Recovering/Resolving]
